FAERS Safety Report 8048673-9 (Version None)
Quarter: 2012Q1

REPORT INFORMATION
  Report Type: 
  Country: None (occurrence: None)
  Receive Date: 20120117
  Receipt Date: 20120111
  Transmission Date: 20120608
  Serious: No
  Sender: FDA-Public Use
  Company Number: US-B.I. PHARMACEUTICALS,INC./RIDGEFIELD-2012-BP-00739BP

PATIENT
  Age: 67 Year
  Sex: Female

DRUGS (5)
  1. TRADJENTA [Suspect]
     Indication: DIABETES MELLITUS
  2. ACCUPRIL [Concomitant]
  3. IMITREX [Concomitant]
  4. BYETTA [Concomitant]
  5. PRAVASTATIN [Concomitant]

REACTIONS (1)
  - DRUG INEFFECTIVE [None]
